FAERS Safety Report 4556172-1 (Version None)
Quarter: 2005Q1

REPORT INFORMATION
  Report Type: 
  Country: None (occurrence: None)
  Receive Date: 20050103
  Receipt Date: 20041027
  Transmission Date: 20050727
  Serious: Yes (Hospitalization)
  Sender: FDA-Public Use
  Company Number: 2004UW20783

PATIENT
  Age: 74 Year
  Sex: Female
  Weight: 66.6788 kg

DRUGS (11)
  1. CRESTOR [Suspect]
     Indication: HYPERLIPIDAEMIA
     Dosage: 10 MG QD PO
     Route: 048
     Dates: start: 20040622, end: 20040716
  2. NITRO-BID [Concomitant]
  3. ASPIRIN [Concomitant]
  4. CALTRATE [Concomitant]
  5. FOSAMAX [Concomitant]
  6. DIOVAN [Concomitant]
  7. TOPROL-XL [Concomitant]
  8. LORAZEPAM [Concomitant]
  9. ZANTAC [Concomitant]
  10. CARDIAZEM [Concomitant]
  11. ATIVAN [Concomitant]

REACTIONS (4)
  - ASTHENIA [None]
  - DIZZINESS [None]
  - NAUSEA [None]
  - PALPITATIONS [None]
